FAERS Safety Report 26122389 (Version 2)
Quarter: 2025Q4

REPORT INFORMATION
  Report Type: Spontaneous
  Country: US (occurrence: US)
  Receive Date: 20251204
  Receipt Date: 20251229
  Transmission Date: 20260117
  Serious: No
  Sender: BRISTOL-MYERS SQUIBB COMPANY
  Company Number: US-BRISTOL-MYERS SQUIBB COMPANY-2025-163577

PATIENT
  Age: 64 Year
  Sex: Male

DRUGS (3)
  1. YERVOY [Suspect]
     Active Substance: IPILIMUMAB
     Indication: Renal cell carcinoma
     Dosage: 50MG/10 ML (5 MG/ML), 2 VIALS
  2. YERVOY [Suspect]
     Active Substance: IPILIMUMAB
     Indication: Lung cancer metastatic
  3. YERVOY [Suspect]
     Active Substance: IPILIMUMAB
     Indication: Metastases to central nervous system

REACTIONS (1)
  - Product preparation error [Unknown]

NARRATIVE: CASE EVENT DATE: 20251202
